FAERS Safety Report 8570382-8 (Version None)
Quarter: 2012Q3

REPORT INFORMATION
  Report Type: 
  Country: None (occurrence: None)
  Receive Date: 20120803
  Receipt Date: 20120725
  Transmission Date: 20120928
  Serious: Yes (Other)
  Sender: FDA-Public Use
  Company Number: US-ASTRAZENECA-2012SE49163

PATIENT
  Age: 65 Year
  Sex: Female
  Weight: 98.4 kg

DRUGS (14)
  1. MUCINEX [Concomitant]
     Indication: HYPERSENSITIVITY
  2. SINGULAIR [Concomitant]
     Indication: HYPERSENSITIVITY
     Route: 048
  3. METFORMIN HYDROCHLORIDE [Concomitant]
     Indication: DIABETES MELLITUS
  4. QUETIAPINE [Concomitant]
     Indication: DEPRESSION
  5. SYMBICORT [Suspect]
     Indication: CHRONIC OBSTRUCTIVE PULMONARY DISEASE
     Dosage: 320 MCG TWO TIMES A DAY
     Route: 055
     Dates: start: 20100101
  6. ALBUTEROL [Concomitant]
     Indication: ASTHMA
     Dosage: PRN
  7. SYMBICORT [Suspect]
     Indication: ASTHMA
     Dosage: 320 MCG TWO TIMES A DAY
     Route: 055
     Dates: start: 20100101
  8. DIPHENHYDRAMINE HCL [Concomitant]
     Indication: HYPERSENSITIVITY
     Route: 048
  9. NAPROXEN [Concomitant]
     Indication: ARTHRITIS
  10. LANTUS [Concomitant]
     Indication: DIABETES MELLITUS
  11. LYRICA [Concomitant]
     Indication: FIBROMYALGIA
  12. BUPROPION HCL [Concomitant]
     Indication: DEPRESSION
  13. ESCITALOPRAM [Concomitant]
     Indication: DEPRESSION
  14. VENTOLIN [Concomitant]
     Indication: ASTHMA
     Dosage: PRN

REACTIONS (7)
  - DRUG EFFECT DECREASED [None]
  - DRUG INEFFECTIVE [None]
  - BRONCHITIS [None]
  - BRONCHITIS CHRONIC [None]
  - MALAISE [None]
  - CHRONIC OBSTRUCTIVE PULMONARY DISEASE [None]
  - TRANSIENT ISCHAEMIC ATTACK [None]
